FAERS Safety Report 12965632 (Version 1)
Quarter: 2016Q4

REPORT INFORMATION
  Report Type: Spontaneous
  Country: US (occurrence: US)
  Receive Date: 20161122
  Receipt Date: 20161122
  Transmission Date: 20170207
  Serious: No
  Sender: FDA-Public Use
  Company Number: US-MYLANLABS-2016M1031526

PATIENT
  Age: 55 Year
  Sex: Male

DRUGS (3)
  1. EMSAM [Suspect]
     Active Substance: SELEGILINE
     Indication: ANXIETY
     Dosage: 9 MG/DAY, CHANGE QD
     Route: 062
     Dates: start: 201607
  2. CLONAZEPAM. [Suspect]
     Active Substance: CLONAZEPAM
     Indication: ANXIETY
     Dosage: 1 MG, TID, UP TO THREE HALF TABLETS QD PRN ANXIETY
     Route: 048
     Dates: start: 201607
  3. EMSAM [Suspect]
     Active Substance: SELEGILINE
     Indication: DEPRESSION

REACTIONS (2)
  - Abdominal discomfort [Not Recovered/Not Resolved]
  - Dyspepsia [Not Recovered/Not Resolved]

NARRATIVE: CASE EVENT DATE: 201607
